FAERS Safety Report 21653816 (Version 3)
Quarter: 2023Q1

REPORT INFORMATION
  Report Type: Spontaneous
  Country: US (occurrence: US)
  Receive Date: 20221129
  Receipt Date: 20230222
  Transmission Date: 20230417
  Serious: Yes (Hospitalization, Other)
  Sender: FDA-Public Use
  Company Number: US-CHEMOCENTRYX, INC.-2022USCCXI0516

PATIENT

DRUGS (2)
  1. TAVNEOS [Suspect]
     Active Substance: AVACOPAN
     Indication: Granulomatosis with polyangiitis
     Dosage: 30 MG, 2X/DAY
     Route: 048
     Dates: start: 20220603
  2. TAVNEOS [Suspect]
     Active Substance: AVACOPAN
     Indication: Renal disorder
     Dosage: 30 MG, 2X/DAY
     Route: 048

REACTIONS (2)
  - Blood sodium decreased [Unknown]
  - Dehydration [Unknown]

NARRATIVE: CASE EVENT DATE: 20220101
